FAERS Safety Report 8853113 (Version 6)
Quarter: 2013Q1

REPORT INFORMATION
  Report Type: Report from Study
  Country: JP (occurrence: JP)
  Receive Date: 20121022
  Receipt Date: 20130125
  Transmission Date: 20140127
  Serious: Yes (Other)
  Sender: FDA-Public Use
  Company Number: JP-ROCHE-1143960

PATIENT
  Age: 71 Year
  Sex: Male

DRUGS (2)
  1. RANIBIZUMAB [Suspect]
     Indication: POLYPOIDAL CHOROIDAL VASCULOPATHY
     Route: 050
     Dates: start: 200907, end: 200908
  2. VERTEPORFIN [Suspect]
     Indication: POLYPOIDAL CHOROIDAL VASCULOPATHY
     Route: 065
     Dates: start: 200907

REACTIONS (3)
  - Retinal haemorrhage [Recovering/Resolving]
  - Polypoidal choroidal vasculopathy [Recovering/Resolving]
  - Visual acuity reduced [Recovering/Resolving]
